FAERS Safety Report 12643566 (Version 11)
Quarter: 2018Q2

REPORT INFORMATION
  Report Type: Spontaneous
  Country: US (occurrence: US)
  Receive Date: 20160811
  Receipt Date: 20180508
  Transmission Date: 20180711
  Serious: Yes (Congenital Anomaly, Other)
  Sender: FDA-Public Use
  Company Number: PHEH2016US019949

PATIENT
  Sex: Female

DRUGS (2)
  1. ZOFRAN ODT [Suspect]
     Active Substance: ONDANSETRON HYDROCHLORIDE
     Indication: FOETAL EXPOSURE DURING PREGNANCY
     Route: 064
  2. ZOFRAN [Suspect]
     Active Substance: ONDANSETRON HYDROCHLORIDE
     Indication: FOETAL EXPOSURE DURING PREGNANCY
     Dosage: MOTHER^S DOSE: 4MG, TID
     Route: 064

REACTIONS (21)
  - Pyrexia [Unknown]
  - Nasal congestion [Unknown]
  - Limb injury [Unknown]
  - Right atrial dilatation [Unknown]
  - Pulmonary artery dilatation [Unknown]
  - Oropharyngeal pain [Unknown]
  - Conjunctivitis [Unknown]
  - Nasopharyngitis [Unknown]
  - Atrial septal defect [Unknown]
  - Pain in extremity [Unknown]
  - Decreased appetite [Unknown]
  - Cardiac murmur [Unknown]
  - Dehydration [Unknown]
  - Rhinorrhoea [Unknown]
  - Right ventricular dilatation [Unknown]
  - Mitral valve incompetence [Unknown]
  - Lethargy [Unknown]
  - Viral infection [Unknown]
  - Diarrhoea [Unknown]
  - Foetal exposure during pregnancy [Unknown]
  - Gastroenteritis [Unknown]
